FAERS Safety Report 10173568 (Version 1)
Quarter: 2014Q2

REPORT INFORMATION
  Report Type: Spontaneous
  Country: US (occurrence: US)
  Receive Date: 20140515
  Receipt Date: 20140515
  Transmission Date: 20141212
  Serious: No
  Sender: FDA-Public Use
  Company Number: US-PFIZER INC-2014133562

PATIENT
  Age: 68 Year
  Sex: Female
  Weight: 72.56 kg

DRUGS (3)
  1. CELEBREX [Suspect]
     Indication: ARTHRITIS
     Dosage: UNK
  2. IBUPROFEN [Concomitant]
     Dosage: 800MG IN A DAY
  3. FISH OIL [Concomitant]
     Dosage: UNK

REACTIONS (1)
  - Pain [Unknown]
